FAERS Safety Report 10065766 (Version 1)
Quarter: 2014Q2

REPORT INFORMATION
  Report Type: Report from Study
  Country: US (occurrence: US)
  Receive Date: 20140408
  Receipt Date: 20140408
  Transmission Date: 20141212
  Serious: Yes (Other)
  Sender: FDA-Public Use
  Company Number: US-ABBVIE-14P-163-1221534-00

PATIENT
  Sex: Female

DRUGS (19)
  1. HUMIRA [Suspect]
     Indication: PSORIATIC ARTHROPATHY
     Dates: start: 2007
  2. METHOTREXATE [Concomitant]
     Indication: PSORIATIC ARTHROPATHY
  3. DULERA [Concomitant]
     Indication: ASTHMA
  4. FOLIC ACID [Concomitant]
     Indication: PRODUCT USED FOR UNKNOWN INDICATION
  5. REQUIP [Concomitant]
     Indication: PARKINSON^S DISEASE
  6. LODOSYN [Concomitant]
     Indication: PARKINSON^S DISEASE
  7. LODOSYN [Concomitant]
     Indication: NAUSEA
  8. ATENOLOL [Concomitant]
     Indication: HYPERTENSION
  9. ATENOLOL [Concomitant]
     Indication: MITRAL VALVE PROLAPSE
  10. PREMARIN [Concomitant]
     Indication: PRODUCT USED FOR UNKNOWN INDICATION
  11. CARBODOPA/LEVADOPA [Concomitant]
     Indication: PARKINSON^S DISEASE
     Dosage: 25/100
  12. CYCLOBENZAPRINE [Concomitant]
     Indication: MUSCLE RELAXANT THERAPY
     Dosage: AS NEEDED
  13. ALBUTEROL [Concomitant]
     Indication: ASTHMA
  14. HYDROCODONE [Concomitant]
     Indication: PSORIATIC ARTHROPATHY
     Dosage: 5/500 1 AS NEEDED (TAKES MAX OF 2 A DAY, SOME ONE,SOME NONE)
  15. VIT B12 [Concomitant]
     Indication: PRODUCT USED FOR UNKNOWN INDICATION
     Route: 060
  16. CLONAZEPAM [Concomitant]
     Indication: PRODUCT USED FOR UNKNOWN INDICATION
     Dosage: AS NEEDED
  17. AMITRIPTYLINE [Concomitant]
     Indication: INSOMNIA
     Dosage: EVENING
  18. AMITRIPTYLINE [Concomitant]
     Dosage: EVENING
  19. TRAZODONE [Concomitant]
     Indication: INSOMNIA
     Dosage: EVENING

REACTIONS (7)
  - Carpal tunnel syndrome [Recovering/Resolving]
  - Fall [Unknown]
  - Concussion [Unknown]
  - Head injury [Unknown]
  - Insomnia [Unknown]
  - Laceration [Unknown]
  - Nerve compression [Unknown]
